FAERS Safety Report 6826480-X (Version None)
Quarter: 2010Q3

REPORT INFORMATION
  Report Type: 
  Country: None (occurrence: None)
  Receive Date: 20100709
  Receipt Date: 20100706
  Transmission Date: 20110219
  Serious: Yes (Other)
  Sender: FDA-Public Use
  Company Number: US-SANOFI-AVENTIS-2010SA039215

PATIENT
  Age: 87 Year
  Sex: Male

DRUGS (10)
  1. MULTAQ [Suspect]
     Indication: ATRIAL FIBRILLATION
     Route: 048
     Dates: start: 20100501, end: 20100601
  2. MULTAQ [Suspect]
     Route: 048
     Dates: start: 20100601
  3. LASIX [Concomitant]
  4. BENICAR [Concomitant]
  5. POTASSIUM CHLORIDE [Concomitant]
  6. ARICEPT [Concomitant]
  7. COUMADIN [Concomitant]
  8. LOVASTATIN [Concomitant]
  9. ASPIRIN [Concomitant]
  10. IRON [Concomitant]

REACTIONS (5)
  - ATRIAL FIBRILLATION [None]
  - DYSPHAGIA [None]
  - FATIGUE [None]
  - NAUSEA [None]
  - PRODUCT QUALITY ISSUE [None]
